FAERS Safety Report 9687900 (Version 4)
Quarter: 2014Q1

REPORT INFORMATION
  Report Type: Spontaneous
  Country: US (occurrence: US)
  Receive Date: 20131114
  Receipt Date: 20140318
  Transmission Date: 20141002
  Serious: Yes (Other)
  Sender: FDA-Public Use
  Company Number: US-PFIZER INC-2013324819

PATIENT
  Age: 77 Year
  Sex: Female

DRUGS (5)
  1. CELEBREX [Suspect]
     Dosage: UNK
  2. LIPITOR [Suspect]
     Dosage: UNK
  3. CALAN SR [Suspect]
     Dosage: UNK
  4. PREMARIN [Suspect]
     Dosage: 0.625 MG, ALTERNATE DAY (QOD)
     Route: 048
  5. XALATAN [Suspect]
     Dosage: UNK

REACTIONS (3)
  - Cardiac failure congestive [Unknown]
  - Renal failure [Unknown]
  - Lung disorder [Unknown]
